FAERS Safety Report 10360182 (Version 1)
Quarter: 2014Q3

REPORT INFORMATION
  Report Type: Spontaneous
  Country: US (occurrence: None)
  Receive Date: 20140731
  Receipt Date: 20140731
  Transmission Date: 20150326
  Serious: Yes (Hospitalization)
  Sender: FDA-Public Use
  Company Number: None

PATIENT
  Age: 46 Year
  Sex: Female
  Weight: 92.53 kg

DRUGS (15)
  1. SOLU-MEDROL [Suspect]
     Active Substance: METHYLPREDNISOLONE SODIUM SUCCINATE
     Dosage: DAY1TO3 1G QD IV(041)
     Route: 042
     Dates: start: 20140414, end: 20140416
  2. MORPHINE [Concomitant]
     Active Substance: MORPHINE
  3. TIZANIDINE [Concomitant]
     Active Substance: TIZANIDINE
  4. DIFLUCAN [Concomitant]
     Active Substance: FLUCONAZOLE
  5. CLONAZEPAM. [Concomitant]
     Active Substance: CLONAZEPAM
  6. PREGABALIN. [Concomitant]
     Active Substance: PREGABALIN
  7. ACYCLOVIR. [Concomitant]
     Active Substance: ACYCLOVIR
  8. BACLOFEN. [Concomitant]
     Active Substance: BACLOFEN
  9. CARBAMAZEPINE. [Concomitant]
     Active Substance: CARBAMAZEPINE
  10. ALEMTUZUMAB [Suspect]
     Active Substance: ALEMTUZUMAB
     Indication: MULTIPLE SCLEROSIS
     Dosage: DAY1TO3 12MG QD IV(041)
     Route: 042
     Dates: start: 20140414, end: 20140416
  11. METOPROLOL [Concomitant]
     Active Substance: METOPROLOL
  12. VITAMIN D [Concomitant]
     Active Substance: CHOLECALCIFEROL
  13. METOCLOPRAMIDE. [Concomitant]
     Active Substance: METOCLOPRAMIDE
  14. LASIX [Concomitant]
     Active Substance: FUROSEMIDE
  15. HYDROXYZINE [Concomitant]
     Active Substance: HYDROXYZINE\HYDROXYZINE HYDROCHLORIDE

REACTIONS (6)
  - Pain in extremity [None]
  - Oedema peripheral [None]
  - Decreased activity [None]
  - Pulmonary embolism [None]
  - Foreign body [None]
  - Peripheral venous disease [None]

NARRATIVE: CASE EVENT DATE: 20140601
